FAERS Safety Report 8831224 (Version 4)
Quarter: 2013Q3

REPORT INFORMATION
  Report Type: Report from Study
  Country: US (occurrence: US)
  Receive Date: 20121008
  Receipt Date: 20130829
  Transmission Date: 20140515
  Serious: Yes (Death, Hospitalization)
  Sender: FDA-Public Use
  Company Number: US-ASTELLAS-2012US009660

PATIENT
  Age: 71 Year
  Sex: Male
  Weight: 77 kg

DRUGS (13)
  1. BLINDED ENZALUTAMIDE [Suspect]
     Indication: PROSTATE CANCER METASTATIC
     Dosage: 1 DF, UID/QD
     Route: 048
     Dates: start: 20120703, end: 20120908
  2. TAMSULOSIN [Concomitant]
     Indication: BENIGN PROSTATIC HYPERPLASIA
     Dosage: 0.4 MG, UID/QD
     Route: 048
     Dates: start: 20110614
  3. ADVIL                              /00109201/ [Concomitant]
     Indication: PAIN
     Dosage: 200 MG, PRN
     Route: 048
     Dates: start: 2009
  4. CARVEDILOL [Concomitant]
     Indication: CORONARY ARTERY DISEASE
     Dosage: 12.5 MG, UID/QD
     Route: 048
     Dates: start: 2007
  5. EFFER-K [Concomitant]
     Indication: CORONARY ARTERY DISEASE
     Dosage: 10 MEQ, UID/QD
     Route: 065
     Dates: start: 200811
  6. FUROSEMIDE [Concomitant]
     Indication: CORONARY ARTERY DISEASE
     Dosage: 20 MG, UID/QD
     Route: 048
     Dates: start: 200811
  7. LISINOPRIL [Concomitant]
     Indication: CORONARY ARTERY DISEASE
     Dosage: 10 MG, UID/QD
     Route: 048
     Dates: start: 200702
  8. PLAVIX [Concomitant]
     Indication: CORONARY ARTERY DISEASE
     Dosage: 75 MG, UID/QD
     Route: 048
     Dates: start: 200702
  9. CENTRUM SILVER                     /02363801/ [Concomitant]
     Indication: MEDICAL DIET
     Dosage: 1 DF, UID/QD
     Route: 048
     Dates: start: 2006
  10. FISH OIL [Concomitant]
     Indication: MEDICAL DIET
     Dosage: 1 DF, UID/QD
     Route: 048
     Dates: start: 2007
  11. GLUCOSAMINE + MSM [Concomitant]
     Indication: MEDICAL DIET
     Dosage: 1 DF, UID/QD
     Route: 048
     Dates: start: 201001
  12. VENLAFAXINE [Concomitant]
     Indication: HOT FLUSH
     Dosage: 12.5 MG, UID/QD
     Route: 048
     Dates: start: 20120726
  13. ASPIRIN [Concomitant]
     Indication: PROPHYLAXIS
     Dosage: 325 MG, UID/QD
     Route: 048
     Dates: start: 200702

REACTIONS (9)
  - Systemic inflammatory response syndrome [Fatal]
  - Acute respiratory failure [Not Recovered/Not Resolved]
  - Pancytopenia [Not Recovered/Not Resolved]
  - Pneumonia aspiration [Not Recovered/Not Resolved]
  - Asthenia [Not Recovered/Not Resolved]
  - Hypotension [Not Recovered/Not Resolved]
  - Constipation [Not Recovered/Not Resolved]
  - Dehydration [Not Recovered/Not Resolved]
  - Renal failure acute [Not Recovered/Not Resolved]
